FAERS Safety Report 24109847 (Version 1)
Quarter: 2024Q3

REPORT INFORMATION
  Report Type: Spontaneous
  Country: US (occurrence: None)
  Receive Date: 20240717
  Receipt Date: 20240717
  Transmission Date: 20241017
  Serious: Yes (Hospitalization, Disabling)
  Sender: Public
  Company Number: None

PATIENT
  Age: 76 Year
  Sex: Female
  Weight: 63 kg

DRUGS (17)
  1. GAVILYTE G [Suspect]
     Active Substance: POLYETHYLENE GLYCOL 3350\POTASSIUM CHLORIDE\SODIUM BICARBONATE\SODIUM CHLORIDE\SODIUM SULFATE
     Indication: Colonoscopy
     Dosage: OTHER FREQUENCY : +4LITERS OF WATER;?
     Route: 048
     Dates: start: 20240519, end: 20240520
  2. GABAPENTIN [Concomitant]
     Active Substance: GABAPENTIN
  3. Alphagan-P eye [Concomitant]
  4. TRIHEXYPHENIDYL [Concomitant]
     Active Substance: TRIHEXYPHENIDYL
  5. NAPROXEN [Concomitant]
     Active Substance: NAPROXEN
  6. Lotemax eyedro [Concomitant]
  7. ALPRAZOLAM [Concomitant]
     Active Substance: ALPRAZOLAM
  8. MULTI-VITAMIN [Concomitant]
     Active Substance: .ALPHA.-TOCOPHEROL ACETATE, DL-\ASCORBIC ACID\CYANOCOBALAMIN\FLUORIDE ION\FOLIC ACID\NIACIN\PYRIDOXI
  9. VITAMIN A [Concomitant]
     Active Substance: VITAMIN A
  10. VITAMIN C [Concomitant]
     Active Substance: ASCORBIC ACID
  11. VITAMIN D2 [Concomitant]
     Active Substance: ERGOCALCIFEROL
  12. VITAMIN B12 [Concomitant]
     Active Substance: CYANOCOBALAMIN
  13. VITAMIN K [Concomitant]
     Active Substance: PHYTONADIONE
  14. UNSPECIFIED INGREDIENT [Concomitant]
     Active Substance: UNSPECIFIED INGREDIENT
  15. Omega3 [Concomitant]
  16. POTASSIUM CITRATE [Concomitant]
     Active Substance: POTASSIUM CITRATE
  17. SELENIUM [Concomitant]
     Active Substance: SELENIUM

REACTIONS (3)
  - Atrial fibrillation [None]
  - Arrhythmia [None]
  - Discomfort [None]

NARRATIVE: CASE EVENT DATE: 20240520
